FAERS Safety Report 7036216-8 (Version None)
Quarter: 2010Q4

REPORT INFORMATION
  Report Type: 
  Country: None (occurrence: None)
  Receive Date: 20101008
  Receipt Date: 20100914
  Transmission Date: 20110411
  Serious: Yes (Other)
  Sender: FDA-Public Use
  Company Number: FR-BRISTOL-MYERS SQUIBB COMPANY-15310667

PATIENT
  Age: 70 Year
  Sex: Male

DRUGS (9)
  1. EFAVIRENZ [Interacting]
     Indication: HIV INFECTION
     Dosage: 600MG/D (FEB-APR'10), 800MG/D FROM APR'10
     Route: 048
     Dates: start: 20070201, end: 20100201
  2. TARGRETIN [Interacting]
     Indication: MYCOSIS FUNGOIDES
     Dates: start: 20091001
  3. LAMIVUDINE [Suspect]
     Indication: HIV INFECTION
     Dates: start: 20060101
  4. ABACAVIR [Suspect]
     Indication: HIV INFECTION
     Dates: start: 20060101
  5. NEVIRAPINE [Concomitant]
  6. PHENOBARBITAL [Concomitant]
  7. PHENYTOIN [Concomitant]
  8. PREDNISONE [Concomitant]
  9. RIFAMPICIN [Concomitant]

REACTIONS (4)
  - DRUG INTERACTION [None]
  - NEUROLOGICAL SYMPTOM [None]
  - PSYCHIATRIC SYMPTOM [None]
  - VIROLOGIC FAILURE [None]
